FAERS Safety Report 5216110-5 (Version None)
Quarter: 2007Q1

REPORT INFORMATION
  Report Type: 
  Country: None (occurrence: None)
  Receive Date: 20061122
  Receipt Date: 20060213
  Transmission Date: 20070707
  Serious: Yes (Hospitalization)
  Sender: FDA-Public Use
  Company Number: 2006010783

PATIENT
  Age: 58 Year
  Sex: Male
  Weight: 86 kg

DRUGS (8)
  1. LIPITOR [Suspect]
     Indication: BLOOD CHOLESTEROL INCREASED
     Dosage: 40 MG (1 IN 1 D), ORAL
     Route: 048
     Dates: start: 20051003, end: 20051005
  2. PIROXICAM [Suspect]
     Indication: ILL-DEFINED DISORDER
     Dates: end: 20051005
  3. ACETYLSALICYLIC ACID SRT [Concomitant]
  4. METOPROLOL SUCCINATE [Concomitant]
  5. NORVASC [Concomitant]
  6. GLIPIZIDE [Concomitant]
  7. ENOXAPARIN SODIUM [Suspect]
     Indication: ILL-DEFINED DISORDER
     Dosage: (516 MG), SUBCUTANEOUS
     Route: 058
     Dates: start: 20050930, end: 20051003
  8. EPTIFIBATIDE [Suspect]
     Indication: ILL-DEFINED DISORDER
     Dosage: (15.48 MG) INTRAVENOUS
     Route: 042
     Dates: start: 20050930, end: 20050930

REACTIONS (2)
  - ANTIPHOSPHOLIPID ANTIBODIES [None]
  - HEPATIC ENZYME INCREASED [None]
